FAERS Safety Report 13708230 (Version 1)
Quarter: 2017Q2

REPORT INFORMATION
  Report Type: Report from Study
  Country: US (occurrence: BR)
  Receive Date: 20170630
  Receipt Date: 20170630
  Transmission Date: 20170830
  Serious: Yes (Other)
  Sender: FDA-Public Use
  Company Number: US-SUNOVION-2017SUN002783

PATIENT
  Sex: Male
  Weight: 54 kg

DRUGS (2)
  1. GLYCOPYRROLATE. [Suspect]
     Active Substance: GLYCOPYRROLATE
     Indication: PROPHYLAXIS
     Dosage: UNK UNK, QD
     Route: 055
     Dates: start: 201606, end: 201611
  2. INDACATEROL [Suspect]
     Active Substance: INDACATEROL
     Indication: PROPHYLAXIS
     Dosage: UNK, QD
     Route: 055

REACTIONS (5)
  - Weight increased [Unknown]
  - Product use issue [Unknown]
  - Hunger [Unknown]
  - Lung neoplasm malignant [Recovering/Resolving]
  - Decreased appetite [Recovering/Resolving]
